FAERS Safety Report 6260195-4 (Version None)
Quarter: 2009Q3

REPORT INFORMATION
  Report Type: 
  Country: None (occurrence: None)
  Receive Date: 20090708
  Receipt Date: 20090630
  Transmission Date: 20100115
  Serious: Yes (Hospitalization)
  Sender: FDA-Public Use
  Company Number: B0571956A

PATIENT
  Sex: Female
  Weight: 56 kg

DRUGS (2)
  1. AUGMENTIN '125' [Suspect]
     Indication: KIDNEY INFECTION
     Dosage: 625MG THREE TIMES PER DAY
     Route: 048
     Dates: start: 20071226, end: 20080101
  2. PARACETAMOL [Concomitant]
     Dosage: 1000MG FOUR TIMES PER DAY
     Route: 048
     Dates: start: 20071223, end: 20080102

REACTIONS (5)
  - ABDOMINAL PAIN [None]
  - BLOOD COUNT ABNORMAL [None]
  - HEPATITIS [None]
  - HEPATOMEGALY [None]
  - WEIGHT DECREASED [None]
